FAERS Safety Report 11336256 (Version 1)
Quarter: 2015Q3

REPORT INFORMATION
  Report Type: Spontaneous
  Country: US (occurrence: None)
  Receive Date: 20150731
  Receipt Date: 20150731
  Transmission Date: 20151125
  Serious: Yes (Hospitalization)
  Sender: FDA-Public Use
  Company Number: None

PATIENT
  Age: 48 Year
  Sex: Male
  Weight: 106.5 kg

DRUGS (1)
  1. NIACIN. [Suspect]
     Active Substance: NIACIN
     Route: 048
     Dates: end: 20130516

REACTIONS (2)
  - Hepatic enzyme increased [None]
  - Hepatotoxicity [None]

NARRATIVE: CASE EVENT DATE: 20130516
